FAERS Safety Report 7044103-4 (Version None)
Quarter: 2010Q4

REPORT INFORMATION
  Report Type: 
  Country: None (occurrence: None)
  Receive Date: 20101013
  Receipt Date: 20101001
  Transmission Date: 20110411
  Serious: Yes (Hospitalization, Other)
  Sender: FDA-Public Use
  Company Number: US-PFIZER INC-2010102654

PATIENT
  Sex: Female

DRUGS (6)
  1. DOXORUBICIN HCL [Suspect]
     Indication: BREAST CANCER
     Dosage: 50 MG/M2 (134 MG)
     Route: 042
  2. NEUPOGEN [Concomitant]
     Dosage: UNK
  3. CYTOXAN [Concomitant]
     Dosage: UNK
  4. ALOXI [Concomitant]
     Dosage: UNK
  5. COMPAZINE [Concomitant]
     Dosage: UNK
  6. DEXAMETHASONE [Concomitant]
     Dosage: UNK

REACTIONS (3)
  - BILE DUCT OBSTRUCTION [None]
  - CHOLELITHIASIS [None]
  - HEPATOCELLULAR INJURY [None]
